FAERS Safety Report 24292135 (Version 1)
Quarter: 2024Q3

REPORT INFORMATION
  Report Type: Spontaneous
  Country: US (occurrence: None)
  Receive Date: 20240906
  Receipt Date: 20240906
  Transmission Date: 20241017
  Serious: No
  Sender: DOMPE FARMACEUTICI
  Company Number: US-FARMAPROD-202307-2137

PATIENT
  Sex: Male

DRUGS (9)
  1. OXERVATE [Suspect]
     Active Substance: CENEGERMIN-BKBJ
     Indication: Neurotrophic keratopathy
     Route: 047
     Dates: start: 20230629
  2. OXERVATE [Suspect]
     Active Substance: CENEGERMIN-BKBJ
  3. TYRVAYA [Concomitant]
     Active Substance: VARENICLINE TARTRATE
     Dosage: 0.03 SPRAY
  4. CEQUA [Concomitant]
     Active Substance: CYCLOSPORINE
  5. INVELTYS [Concomitant]
     Active Substance: LOTEPREDNOL ETABONATE
  6. COMBIGAN [Concomitant]
     Active Substance: BRIMONIDINE TARTRATE\TIMOLOL MALEATE
     Dosage: 0.2%-0.5%
  7. LUMIGAN [Concomitant]
     Active Substance: BIMATOPROST
  8. AVEED [Concomitant]
     Active Substance: TESTOSTERONE UNDECANOATE
     Dosage: 750 MG / 3 ML VIAL
  9. DUPIXENT [Concomitant]
     Active Substance: DUPILUMAB
     Dosage: 200 MG / 1.14  PEN INJECTOR

REACTIONS (2)
  - Device leakage [Unknown]
  - Vision blurred [Unknown]
